FAERS Safety Report 19407721 (Version 1)
Quarter: 2021Q2

REPORT INFORMATION
  Report Type: Spontaneous
  Country: CN (occurrence: CN)
  Receive Date: 20210611
  Receipt Date: 20210611
  Transmission Date: 20210717
  Serious: Yes (Life-Threatening)
  Sender: FDA-Public Use
  Company Number: CN-PFIZER INC-2021623350

PATIENT
  Age: 58 Year
  Sex: Male
  Weight: 60 kg

DRUGS (3)
  1. TAZOCIN [Suspect]
     Active Substance: PIPERACILLIN SODIUM\TAZOBACTAM SODIUM
     Indication: SYMPTOMATIC TREATMENT
     Dosage: 4.5 G, 2X/DAY
     Route: 041
     Dates: start: 20210413, end: 20210419
  2. FU KE WEI (ANLOTINIB DIHYDROCHLORIDE) [Suspect]
     Active Substance: CATEQUENTINIB DIHYDROCHLORIDE
     Indication: SYMPTOMATIC TREATMENT
     Dosage: 10 MG, 1X/DAY
     Route: 048
     Dates: start: 20210115, end: 20210419
  3. POTASSIUM CHLORIDE. [Concomitant]
     Active Substance: POTASSIUM CHLORIDE
     Indication: SYMPTOMATIC TREATMENT
     Dosage: 10 ML, 1X/DAY
     Route: 041
     Dates: start: 20210413, end: 20210419

REACTIONS (1)
  - Platelet count decreased [Recovering/Resolving]

NARRATIVE: CASE EVENT DATE: 20210419
